FAERS Safety Report 25431621 (Version 2)
Quarter: 2025Q3

REPORT INFORMATION
  Report Type: Spontaneous
  Country: US (occurrence: US)
  Receive Date: 20250613
  Receipt Date: 20250704
  Transmission Date: 20251021
  Serious: No
  Sender: OXFORD PHARMACEUTICALS, LLC
  Company Number: US-Oxford Pharmaceuticals, LLC-2178503

PATIENT
  Age: 62 Year
  Sex: Female

DRUGS (4)
  1. CARISOPRODOL [Suspect]
     Active Substance: CARISOPRODOL
     Indication: Muscle spasms
     Dates: start: 20250529
  2. TYLENOL [Concomitant]
     Active Substance: ACETAMINOPHEN
  3. HERBALS\TURMERIC [Concomitant]
     Active Substance: HERBALS\TURMERIC
  4. IBUPROFEN [Concomitant]
     Active Substance: IBUPROFEN

REACTIONS (4)
  - Nausea [Unknown]
  - Product quality issue [Unknown]
  - Influenza like illness [Unknown]
  - Headache [Unknown]

NARRATIVE: CASE EVENT DATE: 20250529
